FAERS Safety Report 7358074-4 (Version None)
Quarter: 2011Q1

REPORT INFORMATION
  Report Type: 
  Country: None (occurrence: None)
  Receive Date: 20110317
  Receipt Date: 20110304
  Transmission Date: 20110831
  Serious: Yes (Disabling, Other)
  Sender: FDA-Public Use
  Company Number: PHHY2010BR69212

PATIENT
  Sex: Female

DRUGS (2)
  1. METHYLDOPA [Suspect]
     Dosage: UNK
  2. DIOVAN HCT [Suspect]
     Dosage: 160/12.5 MG

REACTIONS (3)
  - BLOOD PRESSURE DECREASED [None]
  - INCORRECT DOSE ADMINISTERED [None]
  - PARAPLEGIA [None]
